FAERS Safety Report 21266060 (Version 1)
Quarter: 2022Q3

REPORT INFORMATION
  Report Type: Spontaneous
  Country: US (occurrence: None)
  Receive Date: 20220826
  Receipt Date: 20220826
  Transmission Date: 20221027
  Serious: No
  Sender: FDA-Public Use
  Company Number: None

PATIENT
  Age: 81 Year
  Sex: Female

DRUGS (1)
  1. SUNITINIB [Suspect]
     Active Substance: SUNITINIB
     Dosage: FREQUENCY : DAILY;?
     Route: 048

REACTIONS (6)
  - Dizziness [None]
  - Dehydration [None]
  - Hyperkeratosis [None]
  - Therapy interrupted [None]
  - Stomatitis [None]
  - Oral pain [None]

NARRATIVE: CASE EVENT DATE: 20220826
